FAERS Safety Report 5146393-1 (Version None)
Quarter: 2006Q4

REPORT INFORMATION
  Report Type: 
  Country: None (occurrence: None)
  Receive Date: 20061102
  Receipt Date: 20061019
  Transmission Date: 20070319
  Serious: Yes (Other)
  Sender: FDA-Public Use
  Company Number: AZAUS200500064

PATIENT
  Age: 75 Year
  Sex: Male
  Weight: 82.5547 kg

DRUGS (3)
  1. VIDAZA [Suspect]
     Indication: MYELODYSPLASTIC SYNDROME
     Dosage: SEE IMAGE
     Route: 058
     Dates: start: 20040801, end: 20040801
  2. VIDAZA [Suspect]
     Indication: MYELODYSPLASTIC SYNDROME
     Dosage: SEE IMAGE
     Route: 058
     Dates: start: 20040901, end: 20041101
  3. SIMVASTATIN [Concomitant]

REACTIONS (6)
  - AMYOTROPHIC LATERAL SCLEROSIS [None]
  - BEDRIDDEN [None]
  - BLOOD PRODUCT TRANSFUSION DEPENDENT [None]
  - GAIT DISTURBANCE [None]
  - NERVE INJURY [None]
  - POLYNEUROPATHY [None]
